FAERS Safety Report 4723983-9 (Version None)
Quarter: 2005Q3

REPORT INFORMATION
  Report Type: 
  Country: None (occurrence: None)
  Receive Date: 20050721
  Receipt Date: 20050711
  Transmission Date: 20060218
  Serious: Yes (Hospitalization, Other)
  Sender: FDA-Public Use
  Company Number: 2005100579

PATIENT
  Sex: Female

DRUGS (6)
  1. NORVASC [Suspect]
     Indication: ILL-DEFINED DISORDER
  2. ISOSORBIDE (ISOSORBIDE) [Concomitant]
  3. TRICOR [Concomitant]
  4. LORCET-HD [Concomitant]
  5. METOPROLOL TARTRATE [Concomitant]
  6. VITAMINS (VITAMINS) [Concomitant]

REACTIONS (6)
  - CAROTID ARTERY OCCLUSION [None]
  - CEREBROVASCULAR ACCIDENT [None]
  - FATIGUE [None]
  - REFUSAL OF TREATMENT BY PATIENT [None]
  - TRANSIENT ISCHAEMIC ATTACK [None]
  - WEIGHT INCREASED [None]
